FAERS Safety Report 11322562 (Version 1)
Quarter: 2015Q3

REPORT INFORMATION
  Report Type: Spontaneous
  Country: US (occurrence: None)
  Receive Date: 20150729
  Receipt Date: 20150729
  Transmission Date: 20151125
  Serious: No
  Sender: FDA-Public Use
  Company Number: None

PATIENT
  Age: 85 Year
  Sex: Female

DRUGS (1)
  1. HUMIRA [Suspect]
     Active Substance: ADALIMUMAB
     Indication: PSORIASIS
     Dosage: INJECT SUBCUTANEOUSLY 80MG (2 PENS)
     Route: 058

REACTIONS (2)
  - Wrong technique in product usage process [None]
  - Drug dose omission [None]

NARRATIVE: CASE EVENT DATE: 20150722
